FAERS Safety Report 4531033-2 (Version None)
Quarter: 2004Q4

REPORT INFORMATION
  Report Type: 
  Country: None (occurrence: None)
  Receive Date: 20041215
  Receipt Date: 20041202
  Transmission Date: 20050328
  Serious: Yes (Hospitalization)
  Sender: FDA-Public Use
  Company Number: THYR-10181

PATIENT
  Age: 79 Year
  Sex: Female

DRUGS (2)
  1. THYROGEN [Suspect]
     Indication: GOITRE
     Dosage: 0.03 MG ONCE IM
     Route: 030
     Dates: start: 20030216, end: 20030223
  2. IODINE-131 [Suspect]
     Indication: GOITRE
     Dosage: 30
     Dates: start: 20030201

REACTIONS (7)
  - BLOOD THYROID STIMULATING HORMONE INCREASED [None]
  - HYPOTHYROIDISM [None]
  - INFECTION [None]
  - OFF LABEL USE [None]
  - PALPITATIONS [None]
  - RED BLOOD CELL SEDIMENTATION RATE INCREASED [None]
  - THYROIDITIS [None]
